FAERS Safety Report 5703757-2 (Version None)
Quarter: 2008Q2

REPORT INFORMATION
  Report Type: 
  Country: None (occurrence: None)
  Receive Date: 20080413
  Receipt Date: 20080407
  Transmission Date: 20081010
  Serious: Yes (Other)
  Sender: FDA-Public Use
  Company Number: PHHY2008JP04981

PATIENT
  Age: 63 Year
  Sex: Male

DRUGS (1)
  1. TEGRETOL [Suspect]

REACTIONS (1)
  - RHABDOMYOLYSIS [None]
